FAERS Safety Report 8134543-4 (Version None)
Quarter: 2012Q1

REPORT INFORMATION
  Report Type: 
  Country: None (occurrence: None)
  Receive Date: 20120209
  Receipt Date: 20120126
  Transmission Date: 20120608
  Serious: Yes (Other)
  Sender: FDA-Public Use
  Company Number: US-2012-10074

PATIENT
  Age: 42 Year
  Sex: Female

DRUGS (4)
  1. DIOVAN [Concomitant]
  2. RAMIPRIL [Concomitant]
  3. OPC-41061 (TOLVAPTAN) TABLET, 15 MG [Suspect]
     Indication: CONGENITAL CYSTIC KIDNEY DISEASE
     Dosage: 45/15 MG, ORAL
     Route: 048
     Dates: start: 20111206, end: 20120125
  4. CARVEDILOL [Concomitant]

REACTIONS (2)
  - INCONTINENCE [None]
  - ASTHMA [None]
